FAERS Safety Report 9209726 (Version 1)
Quarter: 2013Q1

REPORT INFORMATION
  Report Type: Spontaneous
  Country: US (occurrence: None)
  Receive Date: 20120820
  Receipt Date: 20120820
  Transmission Date: 20140127
  Serious: No
  Sender: FDA-Public Use
  Company Number: 1000030290

PATIENT
  Age: 64 Year
  Sex: Female

DRUGS (6)
  1. VIIBRYD [Suspect]
     Indication: ANXIETY
     Dosage: 10 MG (10 MG, 10 MG, 1 IN 1 D)
     Dates: start: 201204, end: 201204
  2. VIIBRYD [Suspect]
     Indication: ANXIETY
     Dosage: 40 MG (40 MG, 1 IN 1 D)
     Dates: start: 201204, end: 20120501
  3. METOPROPOL (METOPROLOL) (METOPROLOL) [Concomitant]
  4. HYDROCHLOROTHIAZIDE (HYDROCHLOROTHIAZIDE) (HYDROCHLOROTHIAZIDE) [Concomitant]
  5. PREVACID (LANSOPRAZOLE) (LANSOPRAZOLE) [Concomitant]
  6. ASPIRIN (ACETYLSALICYLIC ACID) (ACETYLSALICYLIC ACID) [Concomitant]

REACTIONS (3)
  - Off label use [None]
  - Somnolence [None]
  - Insomnia [None]
